FAERS Safety Report 5876064-5 (Version None)
Quarter: 2008Q3

REPORT INFORMATION
  Report Type: 
  Country: None (occurrence: None)
  Receive Date: 20080905
  Receipt Date: 20080826
  Transmission Date: 20090109
  Serious: Yes (Hospitalization, Other)
  Sender: FDA-Public Use
  Company Number: TW-ROSEMONTLT-UKRP0002371 - 26-AUG-2008

PATIENT
  Age: 56 Year
  Sex: Female

DRUGS (1)
  1. TAMOXIFEN CITRATE [Suspect]
     Indication: BREAST CANCER
     Dosage: 20 MG TIMES PR. 1. DAY

REACTIONS (3)
  - ADENOMYOSIS [None]
  - CERVICITIS [None]
  - UTERINE LEIOMYOMA [None]
